FAERS Safety Report 8606732 (Version 2)
Quarter: 2013Q2

REPORT INFORMATION
  Report Type: Spontaneous
  Country: US (occurrence: US)
  Receive Date: 20120611
  Receipt Date: 20130611
  Transmission Date: 20140414
  Serious: Yes (Death, Disabling)
  Sender: FDA-Public Use
  Company Number: US-ASTRAZENECA-2012SE35268

PATIENT
  Sex: Female

DRUGS (4)
  1. NEXIUM [Suspect]
     Indication: DYSPEPSIA
     Dosage: THREE TIMES DAILY
     Route: 048
     Dates: start: 2010
  2. LORCET [Concomitant]
     Indication: PAIN
  3. XANAX [Concomitant]
     Indication: NERVOUS SYSTEM DISORDER
  4. HEART MEDS [Concomitant]

REACTIONS (5)
  - Death [Fatal]
  - Overweight [Unknown]
  - Osteoporosis [Unknown]
  - Multiple fractures [Unknown]
  - Arthritis [Unknown]
